FAERS Safety Report 10176294 (Version 1)
Quarter: 2014Q2

REPORT INFORMATION
  Report Type: Spontaneous
  Country: US (occurrence: US)
  Receive Date: 20140516
  Receipt Date: 20140516
  Transmission Date: 20141212
  Serious: No
  Sender: FDA-Public Use
  Company Number: US-PFIZER INC-2014132460

PATIENT
  Age: 68 Year
  Sex: Female
  Weight: 49 kg

DRUGS (3)
  1. LEVOXYL [Suspect]
     Indication: HYPOTHYROIDISM
     Dosage: 50 UG, 1X/DAY
     Dates: start: 2000
  2. LEVOXYL [Suspect]
     Dosage: 75 UG, 1X/DAY
  3. LEVOXYL [Suspect]
     Dosage: 75 UG, 1X/DAY
     Dates: start: 20140501

REACTIONS (1)
  - Nervousness [Not Recovered/Not Resolved]
